FAERS Safety Report 5106563-5 (Version None)
Quarter: 2006Q3

REPORT INFORMATION
  Report Type: 
  Country: None (occurrence: None)
  Receive Date: 20060918
  Receipt Date: 20060908
  Transmission Date: 20061208
  Serious: Yes (Life-Threatening)
  Sender: FDA-Public Use
  Company Number: FR-GLAXOSMITHKLINE-B0438262A

PATIENT
  Age: 48 Year
  Sex: Male

DRUGS (1)
  1. AUGMENTIN '125' [Suspect]
     Indication: PLEURISY
     Dosage: 1UNIT SINGLE DOSE
     Route: 042
     Dates: start: 20060804, end: 20060804

REACTIONS (5)
  - ANAPHYLACTIC SHOCK [None]
  - BLOOD PRESSURE SYSTOLIC DECREASED [None]
  - DIARRHOEA [None]
  - ERYTHEMA [None]
  - TACHYPNOEA [None]
